FAERS Safety Report 6708709-1 (Version None)
Quarter: 2010Q2

REPORT INFORMATION
  Report Type: 
  Country: None (occurrence: None)
  Receive Date: 20100503
  Receipt Date: 20100426
  Transmission Date: 20101027
  Serious: Yes (Other)
  Sender: FDA-Public Use
  Company Number: US-AMGEN-QUU408616

PATIENT
  Sex: Male

DRUGS (2)
  1. NPLATE [Suspect]
     Indication: IDIOPATHIC THROMBOCYTOPENIC PURPURA
     Route: 058
     Dates: start: 20090924, end: 20090930
  2. CORTICOSTEROIDS [Concomitant]

REACTIONS (2)
  - THERAPEUTIC RESPONSE INCREASED [None]
  - THROMBOPHLEBITIS SUPERFICIAL [None]
